APPROVED DRUG PRODUCT: CLINDAMYCIN PHOSPHATE
Active Ingredient: CLINDAMYCIN PHOSPHATE
Strength: EQ 150MG BASE/ML
Dosage Form/Route: INJECTABLE;INJECTION
Application: A063041 | Product #001
Applicant: TEVA PARENTERAL MEDICINES INC
Approved: Dec 29, 1989 | RLD: No | RS: No | Type: DISCN